FAERS Safety Report 7559773-1 (Version None)
Quarter: 2011Q2

REPORT INFORMATION
  Report Type: 
  Country: None (occurrence: None)
  Receive Date: 20110621
  Receipt Date: 20110609
  Transmission Date: 20111010
  Serious: Yes (Other)
  Sender: FDA-Public Use
  Company Number: US-ROCHE-782360

PATIENT

DRUGS (1)
  1. AVASTIN [Suspect]
     Indication: RECTAL CANCER
     Dosage: DOSE AND FREQUENCY NOT PROVIDED
     Route: 065

REACTIONS (1)
  - BLADDER HYPERTROPHY [None]
